FAERS Safety Report 23278728 (Version 1)
Quarter: 2023Q4

REPORT INFORMATION
  Report Type: Spontaneous
  Country: US (occurrence: US)
  Receive Date: 20231208
  Receipt Date: 20231208
  Transmission Date: 20240110
  Serious: No
  Sender: FDA-Public Use
  Company Number: US-NOVOPROD-1101353

PATIENT
  Sex: Female

DRUGS (1)
  1. NOVOLIN R [Suspect]
     Active Substance: INSULIN HUMAN
     Indication: Type 1 diabetes mellitus
     Dosage: UNK
     Route: 058

REACTIONS (6)
  - Headache [Unknown]
  - Chills [Unknown]
  - Nausea [Unknown]
  - Asthenia [Unknown]
  - Pain [Unknown]
  - Product contamination [Unknown]
